FAERS Safety Report 5566727-3 (Version None)
Quarter: 2007Q4

REPORT INFORMATION
  Report Type: 
  Country: None (occurrence: None)
  Receive Date: 20071218
  Receipt Date: 20071218
  Transmission Date: 20080405
  Serious: Yes (Other)
  Sender: FDA-Public Use
  Company Number: None

PATIENT
  Sex: Male
  Weight: 104.1005 kg

DRUGS (1)
  1. ISONIAZID [Suspect]
     Indication: LATENT TUBERCULOSIS
     Dosage: 900 MG  TWICE WEEKLY  PO
     Route: 048
     Dates: start: 20070703, end: 20071101

REACTIONS (2)
  - ALANINE AMINOTRANSFERASE INCREASED [None]
  - ASPARTATE AMINOTRANSFERASE INCREASED [None]
